FAERS Safety Report 8999377 (Version 2)
Quarter: 2013Q1

REPORT INFORMATION
  Report Type: Spontaneous
  Country: US (occurrence: US)
  Receive Date: 20130103
  Receipt Date: 20130118
  Transmission Date: 20140127
  Serious: No
  Sender: FDA-Public Use
  Company Number: US-US-EMD SERONO, INC.-7086060

PATIENT
  Sex: Female

DRUGS (4)
  1. REBIF [Suspect]
     Indication: MULTIPLE SCLEROSIS
     Route: 058
     Dates: start: 20110628
  2. IBUPROFEN [Concomitant]
     Indication: PREMEDICATION
  3. LEVOTHYROXINE [Concomitant]
     Indication: PRODUCT USED FOR UNKNOWN INDICATION
  4. NUVARING [Concomitant]
     Indication: CONTRACEPTION

REACTIONS (3)
  - Creatinine renal clearance decreased [Unknown]
  - Injection site erythema [Unknown]
  - Depression [Unknown]
